FAERS Safety Report 22803762 (Version 8)
Quarter: 2024Q1

REPORT INFORMATION
  Report Type: Report from Study
  Country: CN (occurrence: CN)
  Receive Date: 20230809
  Receipt Date: 20240207
  Transmission Date: 20240410
  Serious: Yes (Hospitalization, Other)
  Sender: FDA-Public Use
  Company Number: CN-TAKEDA-2023TUS076239

PATIENT
  Age: 69 Year
  Sex: Female
  Weight: 63.5 kg

DRUGS (14)
  1. IXAZOMIB [Suspect]
     Active Substance: IXAZOMIB
     Indication: Plasma cell myeloma
     Dosage: 3 MILLIGRAM, 1/WEEK
     Route: 048
     Dates: start: 20230707
  2. VELCADE [Suspect]
     Active Substance: BORTEZOMIB
     Indication: Plasma cell myeloma
     Dosage: UNK
     Route: 065
     Dates: start: 20230822
  3. DEXAMETHASONE SODIUM PHOSPHATE [Suspect]
     Active Substance: DEXAMETHASONE PHOSPHATE\DEXAMETHASONE SODIUM PHOSPHATE
     Indication: Plasma cell myeloma
     Dosage: 20 MILLIGRAM
     Route: 042
     Dates: start: 20230707, end: 20230707
  4. LENALIDOMIDE [Suspect]
     Active Substance: LENALIDOMIDE
     Indication: Plasma cell myeloma
     Dosage: 25 MILLIGRAM, QD
     Route: 048
     Dates: start: 20230707
  5. LENALIDOMIDE [Suspect]
     Active Substance: LENALIDOMIDE
     Dosage: UNK
     Route: 048
     Dates: start: 20230822
  6. DEXAMETHASONE SODIUM PHOSPHATE [Concomitant]
     Active Substance: DEXAMETHASONE PHOSPHATE\DEXAMETHASONE SODIUM PHOSPHATE
     Indication: Plasma cell myeloma
     Dosage: 20 MILLIGRAM
     Route: 042
     Dates: start: 20230317
  7. ESOMEPRAZOLE SODIUM [Concomitant]
     Active Substance: ESOMEPRAZOLE SODIUM
     Indication: Functional gastrointestinal disorder
     Dosage: 40 MILLIGRAM
     Route: 042
     Dates: start: 20230628, end: 20230629
  8. METOCLOPRAMIDE DIHYDROCHLORIDE [Concomitant]
     Active Substance: METOCLOPRAMIDE DIHYDROCHLORIDE
     Indication: Functional gastrointestinal disorder
     Dosage: 10 MILLIGRAM
     Route: 065
     Dates: start: 20230707, end: 20230707
  9. THYMALFASIN [Concomitant]
     Active Substance: THYMALFASIN
     Indication: Immunisation
     Dosage: 1.6 MILLIGRAM
     Route: 058
     Dates: start: 20230708, end: 20230708
  10. ASPIRIN [Concomitant]
     Active Substance: ASPIRIN
     Indication: Thrombosis
     Dosage: 0.1 GRAM, QD
     Route: 048
     Dates: start: 20230709
  11. ATORVASTATIN CALCIUM [Concomitant]
     Active Substance: ATORVASTATIN CALCIUM
     Indication: Prophylaxis
     Dosage: 20 MILLIGRAM, QD
     Route: 048
     Dates: start: 20230709
  12. ESTAZOLAM [Concomitant]
     Active Substance: ESTAZOLAM
     Indication: Prophylaxis
     Dosage: 2 MILLIGRAM
     Route: 048
     Dates: start: 20230709
  13. ESOMEPRAZOLE MAGNESIUM [Concomitant]
     Active Substance: ESOMEPRAZOLE\ESOMEPRAZOLE MAGNESIUM\ESOMEPRAZOLE MAGNESIUM DIHYDRATE
     Indication: Functional gastrointestinal disorder
     Dosage: 20 MILLIGRAM, BID
     Route: 048
     Dates: start: 20230709
  14. METOPROLOL [Concomitant]
     Active Substance: METOPROLOL
     Indication: Essential hypertension
     Dosage: 100 MILLIGRAM, BID
     Route: 048
     Dates: start: 2017

REACTIONS (4)
  - COVID-19 pneumonia [Recovering/Resolving]
  - Pneumonia [Recovering/Resolving]
  - Conjunctivitis [Recovered/Resolved]
  - Off label use [Recovered/Resolved]

NARRATIVE: CASE EVENT DATE: 20230707
